FAERS Safety Report 15371932 (Version 1)
Quarter: 2018Q3

REPORT INFORMATION
  Report Type: Report from Study
  Country: US (occurrence: US)
  Receive Date: 20180911
  Receipt Date: 20180911
  Transmission Date: 20181010
  Serious: Yes (Death, Life-Threatening, Other)
  Sender: FDA-Public Use
  Company Number: US-TEVA-2018-US-952586

PATIENT
  Age: 27 Year
  Sex: Male

DRUGS (1)
  1. MORPHINE [Suspect]
     Active Substance: MORPHINE
     Route: 065

REACTIONS (17)
  - Heart injury [Unknown]
  - Coagulopathy [Unknown]
  - Hypotension [Unknown]
  - Acute lung injury [Unknown]
  - Coma [Unknown]
  - Toxicity to various agents [Fatal]
  - Asthma [Unknown]
  - Depressed level of consciousness [Unknown]
  - Rhabdomyolysis [Unknown]
  - Ischaemia [Unknown]
  - Acute respiratory distress syndrome [Unknown]
  - Anion gap abnormal [Unknown]
  - Acute kidney injury [Unknown]
  - Bronchial hyperreactivity [Unknown]
  - Bradypnoea [Unknown]
  - Metabolic acidosis [Unknown]
  - Respiratory depression [Unknown]
